FAERS Safety Report 19568684 (Version 2)
Quarter: 2021Q3

REPORT INFORMATION
  Report Type: Report from Study
  Country: MA (occurrence: MA)
  Receive Date: 20210714
  Receipt Date: 20210727
  Transmission Date: 20211014
  Serious: Yes (Death, Other)
  Sender: FDA-Public Use
  Company Number: MA-INCYTE CORPORATION-2021IN005421

PATIENT

DRUGS (1)
  1. JAKAVI [Suspect]
     Active Substance: RUXOLITINIB
     Indication: MYELOFIBROSIS
     Dosage: 2 DF, PER DAY
     Route: 048
     Dates: start: 20210220

REACTIONS (6)
  - Splenomegaly [Unknown]
  - Blood count abnormal [Unknown]
  - Drug ineffective [Unknown]
  - Platelet count decreased [Unknown]
  - Fatigue [Unknown]
  - Death [Fatal]

NARRATIVE: CASE EVENT DATE: 20210607
